FAERS Safety Report 8055470-7 (Version None)
Quarter: 2012Q1

REPORT INFORMATION
  Report Type: 
  Country: None (occurrence: None)
  Receive Date: 20120119
  Receipt Date: 20111017
  Transmission Date: 20120608
  Serious: No
  Sender: FDA-Public Use
  Company Number: CA-JNJFOC-20111010102

PATIENT
  Sex: Female
  Weight: 88.6 kg

DRUGS (3)
  1. REMICADE [Suspect]
     Indication: CROHN'S DISEASE
     Route: 042
     Dates: start: 20090824
  2. CYCLOBENZAPRINE [Concomitant]
     Route: 065
  3. LORAZEPAM [Concomitant]
     Dosage: AS NECESSARY
     Route: 065

REACTIONS (2)
  - DIARRHOEA [None]
  - FUNGAL INFECTION [None]
